FAERS Safety Report 12662383 (Version 3)
Quarter: 2017Q4

REPORT INFORMATION
  Report Type: Spontaneous
  Country: US (occurrence: US)
  Receive Date: 20160817
  Receipt Date: 20171109
  Transmission Date: 20180320
  Serious: Yes (Other)
  Sender: FDA-Public Use
  Company Number: US-ASTRAZENECA-2016SE88069

PATIENT
  Age: 19269 Day
  Sex: Female
  Weight: 154.2 kg

DRUGS (16)
  1. CYCLOBENZAPRINE. [Concomitant]
     Active Substance: CYCLOBENZAPRINE
     Dosage: 10.0MG UNKNOWN
     Route: 048
     Dates: start: 20131226
  2. ONGLYZA [Suspect]
     Active Substance: SAXAGLIPTIN HYDROCHLORIDE
     Indication: TYPE 2 DIABETES MELLITUS
     Route: 048
     Dates: start: 201310, end: 201503
  3. GLYBURIDE. [Concomitant]
     Active Substance: GLYBURIDE
     Route: 048
  4. NOVOLIN INSULIN [Concomitant]
     Dosage: INJECT 20 UNIT SUBCUTANEOUSLY BEFORE MEALS
     Dates: start: 20140618
  5. LYRICA [Concomitant]
     Active Substance: PREGABALIN
     Dosage: TAKE 1 CAPSULE BY MOUTH EVERY MORNING AND CAPSULES EVERY EVENING
     Route: 048
     Dates: start: 20150414
  6. LOPRESSOR [Concomitant]
     Active Substance: METOPROLOL TARTRATE
     Route: 048
     Dates: start: 20140609
  7. CARVEDILOL. [Concomitant]
     Active Substance: CARVEDILOL
     Route: 048
     Dates: start: 20140618
  8. METOPROLOL. [Concomitant]
     Active Substance: METOPROLOL
     Route: 048
     Dates: start: 20150414
  9. KOMBIGLYZE XR [Suspect]
     Active Substance: METFORMIN HYDROCHLORIDE\SAXAGLIPTIN HYDROCHLORIDE
     Indication: TYPE 2 DIABETES MELLITUS
     Route: 048
     Dates: start: 201310, end: 201503
  10. HYDROCODONE/ACETAMINOPHEN [Concomitant]
     Active Substance: ACETAMINOPHEN\HYDROCODONE
     Dosage: EVERY 6 HOURS AS NEEDED
     Dates: start: 20140527
  11. FUROSEMIDE. [Concomitant]
     Active Substance: FUROSEMIDE
     Route: 048
     Dates: start: 20150414
  12. ONGLYZA [Suspect]
     Active Substance: SAXAGLIPTIN HYDROCHLORIDE
     Indication: TYPE 2 DIABETES MELLITUS
     Route: 048
     Dates: start: 20130927
  13. CRESTOR [Concomitant]
     Active Substance: ROSUVASTATIN CALCIUM
     Route: 048
     Dates: start: 20140609
  14. HYDRALAZINE [Concomitant]
     Active Substance: HYDRALAZINE HYDROCHLORIDE
     Route: 048
     Dates: start: 20140609
  15. CITALOPRAM [Concomitant]
     Active Substance: CITALOPRAM HYDROBROMIDE
     Route: 048
     Dates: start: 20150414
  16. PRILOSEC [Concomitant]
     Active Substance: OMEPRAZOLE MAGNESIUM
     Dates: start: 20140615

REACTIONS (4)
  - Respiratory failure [Unknown]
  - Cardiac failure congestive [Unknown]
  - Cardiac failure [Unknown]
  - Acute left ventricular failure [Unknown]

NARRATIVE: CASE EVENT DATE: 20140615
